FAERS Safety Report 7622534-9 (Version None)
Quarter: 2011Q3

REPORT INFORMATION
  Report Type: 
  Country: None (occurrence: None)
  Receive Date: 20110719
  Receipt Date: 20110719
  Transmission Date: 20111222
  Serious: Yes (Hospitalization, Other)
  Sender: FDA-Public Use
  Company Number: None

PATIENT
  Age: 86 Year
  Sex: Male
  Weight: 79.3795 kg

DRUGS (1)
  1. SEROQUEL [Suspect]
     Dosage: TWICE A DAY
     Dates: start: 20110704, end: 20110715

REACTIONS (1)
  - DYSKINESIA [None]
